FAERS Safety Report 5712884-5 (Version None)
Quarter: 2008Q2

REPORT INFORMATION
  Report Type: 
  Country: None (occurrence: None)
  Receive Date: 20080422
  Receipt Date: 20080416
  Transmission Date: 20081010
  Serious: Yes (Death, Life-Threatening, Hospitalization)
  Sender: FDA-Public Use
  Company Number: B0517621A

PATIENT
  Age: 17 Year
  Sex: Male

DRUGS (4)
  1. ALBENDAZOLE [Suspect]
     Indication: FILARIASIS LYMPHATIC
     Dosage: 400MG SINGLE DOSE
     Route: 048
     Dates: start: 20070624, end: 20070624
  2. DIETHYLCARBAMAZINE CITRATE [Suspect]
     Indication: FILARIASIS LYMPHATIC
     Dosage: 300MG SINGLE DOSE
     Route: 048
     Dates: start: 20070624, end: 20070624
  3. HERBAL MEDICATION [Concomitant]
     Indication: DYSPNOEA
  4. CONCURRENT MEDICATIONS [Concomitant]
     Indication: DYSPNOEA

REACTIONS (5)
  - ABDOMINAL DISTENSION [None]
  - DYSPNOEA [None]
  - PULMONARY OEDEMA [None]
  - RENAL FAILURE CHRONIC [None]
  - URAEMIC ENCEPHALOPATHY [None]
